FAERS Safety Report 18874315 (Version 2)
Quarter: 2021Q1

REPORT INFORMATION
  Report Type: Spontaneous
  Country: CN (occurrence: CN)
  Receive Date: 20210210
  Receipt Date: 20210324
  Transmission Date: 20210420
  Serious: Yes (Hospitalization)
  Sender: FDA-Public Use
  Company Number: CN-BAYER-2021-049241

PATIENT
  Age: 52 Year
  Sex: Female
  Weight: 50 kg

DRUGS (1)
  1. STIVARGA [Suspect]
     Active Substance: REGORAFENIB
     Indication: NEOPLASM
     Dosage: 2 DF, QD
     Route: 048
     Dates: start: 20210104, end: 20210118

REACTIONS (9)
  - Memory impairment [Recovering/Resolving]
  - Prosopagnosia [Recovering/Resolving]
  - Tachypnoea [Recovering/Resolving]
  - Off label use [None]
  - Incoherent [Recovering/Resolving]
  - Erythema [Recovering/Resolving]
  - Altered state of consciousness [Recovering/Resolving]
  - Pyrexia [Recovering/Resolving]
  - Coma [Recovered/Resolved]

NARRATIVE: CASE EVENT DATE: 20210104
